FAERS Safety Report 6010807-5 (Version None)
Quarter: 2008Q4

REPORT INFORMATION
  Report Type: 
  Country: None (occurrence: None)
  Receive Date: 20081218
  Receipt Date: 20081209
  Transmission Date: 20090506
  Serious: Yes (Other)
  Sender: FDA-Public Use
  Company Number: PHHY2008DE31319

PATIENT
  Age: 72 Year
  Sex: Male

DRUGS (5)
  1. LEPONEX [Suspect]
     Route: 048
  2. RAMIPRIL [Concomitant]
  3. STALEVO 100 [Concomitant]
  4. SIFROL [Concomitant]
  5. OMEPROL [Concomitant]

REACTIONS (1)
  - HYPERAESTHESIA [None]
